FAERS Safety Report 5855613-7 (Version None)
Quarter: 2008Q3

REPORT INFORMATION
  Report Type: 
  Country: None (occurrence: None)
  Receive Date: 20080821
  Receipt Date: 20080805
  Transmission Date: 20090109
  Serious: Yes (Death)
  Sender: FDA-Public Use
  Company Number: 2008S1013850

PATIENT
  Sex: Female

DRUGS (1)
  1. FENTANYL TRANSDERMAL SYSTEM [Suspect]
     Dosage: TRANSDERMAL
     Route: 062
     Dates: start: 20060401, end: 20060411

REACTIONS (2)
  - DRUG TOXICITY [None]
  - OVERDOSE [None]
